FAERS Safety Report 4617767-X (Version None)
Quarter: 2005Q1

REPORT INFORMATION
  Report Type: 
  Country: None (occurrence: None)
  Receive Date: 20050322
  Receipt Date: 20050309
  Transmission Date: 20050727
  Serious: Yes (Hospitalization)
  Sender: FDA-Public Use
  Company Number: DEU-2005-0001316

PATIENT
  Age: 84 Year
  Sex: Female

DRUGS (16)
  1. MORPHINE SULFATE [Suspect]
     Indication: PAIN
     Dosage: 10 MG, BID, ORAL
     Route: 048
     Dates: start: 20050109, end: 20050110
  2. VALORON N (TILIDINE HYDROCHLORIDE) ORAL DROPS [Suspect]
     Indication: PAIN
     Dosage: 75 MG, QID, ORAL
     Route: 048
     Dates: start: 20050108, end: 20050110
  3. SURMONTIL (TRIMIPRAMINE) TABLET [Suspect]
     Indication: DRUG USE FOR UNKNOWN INDICATION
     Dosage: 25 MG, DAILY, ORAL
     Route: 048
     Dates: start: 20050109, end: 20050110
  4. NEURONTIN [Suspect]
     Indication: PAIN
     Dosage: 600 MG, TID, ORAL
     Route: 048
     Dates: start: 20050108, end: 20050110
  5. BELOC ZOK TABLET (METOPROLOL SUCCINATE) TABLET [Suspect]
     Indication: MYOCARDIAL ISCHAEMIA
     Dosage: 100 MG, DAILY, ORAL
  6. MARCUMAR [Concomitant]
  7. RAMIPRIL [Concomitant]
  8. NORVASC [Concomitant]
  9. PRAVASTATIN SODIUM [Concomitant]
  10. CORVATON ^HOECHST^ (MOLSIDOMINE) [Concomitant]
  11. PARACETAMOL [Concomitant]
  12. CALCIUM GLUCONATE [Concomitant]
  13. FOSAMAX [Concomitant]
  14. NITRODERM [Concomitant]
  15. TOREM (TORASEMIDE) [Concomitant]
  16. LANSOPRAZOLE [Suspect]
     Dosage: 30 MG, DAILY. ORAL

REACTIONS (4)
  - DRUG INTERACTION [None]
  - GLASGOW COMA SCALE ABNORMAL [None]
  - OVERDOSE [None]
  - STUPOR [None]
